FAERS Safety Report 4727856-7 (Version None)
Quarter: 2005Q3

REPORT INFORMATION
  Report Type: 
  Country: None (occurrence: None)
  Receive Date: 20050728
  Receipt Date: 20050718
  Transmission Date: 20060218
  Serious: Yes (Hospitalization)
  Sender: FDA-Public Use
  Company Number: NO-MERCK-0507NOR00018

PATIENT
  Age: 71 Year
  Sex: Female

DRUGS (6)
  1. VIOXX [Suspect]
     Indication: OSTEOARTHRITIS
     Route: 065
     Dates: start: 20011217, end: 20041001
  2. VIOXX [Suspect]
     Indication: MYALGIA
     Route: 065
     Dates: start: 20011217, end: 20041001
  3. ALENDRONATE SODIUM [Concomitant]
     Indication: OSTEOPOROSIS
     Route: 065
  4. ASPIRIN AND MAGNESIUM OXIDE [Concomitant]
     Indication: HEADACHE
     Route: 065
     Dates: end: 20040801
  5. RALOXIFENE HYDROCHLORIDE [Concomitant]
     Route: 065
  6. ESTRADIOL AND NORETHINDRONE ACETATE [Concomitant]
     Route: 065

REACTIONS (1)
  - CEREBRAL HAEMORRHAGE [None]
